FAERS Safety Report 6848208-X (Version None)
Quarter: 2010Q3

REPORT INFORMATION
  Report Type: 
  Country: None (occurrence: None)
  Receive Date: 20100716
  Receipt Date: 20100708
  Transmission Date: 20110219
  Serious: Yes (Hospitalization)
  Sender: FDA-Public Use
  Company Number: B0665655A

PATIENT
  Age: 50 Year
  Sex: Female

DRUGS (4)
  1. ZOFRON [Suspect]
     Route: 065
  2. ZOLOFT [Suspect]
     Route: 048
  3. XELODA [Suspect]
     Dosage: 2G TWICE PER DAY
     Route: 048
     Dates: start: 20100101
  4. HERCEPTIN [Concomitant]
     Route: 042

REACTIONS (2)
  - INTENTIONAL OVERDOSE [None]
  - SUICIDE ATTEMPT [None]
